FAERS Safety Report 25921847 (Version 1)
Quarter: 2025Q4

REPORT INFORMATION
  Report Type: Spontaneous
  Country: CN (occurrence: CN)
  Receive Date: 20251015
  Receipt Date: 20251015
  Transmission Date: 20260117
  Serious: Yes (Hospitalization, Other)
  Sender: BAXTER
  Company Number: None

PATIENT
  Age: 46 Year
  Sex: Female
  Weight: 62 kg

DRUGS (4)
  1. CYCLOPHOSPHAMIDE [Suspect]
     Active Substance: CYCLOPHOSPHAMIDE
     Indication: Breast cancer female
     Dosage: 950 MG, QD (WITH 100ML OF NORMAL SALINE)
     Route: 041
     Dates: start: 20250926, end: 20250926
  2. PACLITAXEL [Suspect]
     Active Substance: PACLITAXEL
     Indication: Breast cancer female
     Dosage: 420 MG, QD (WITH 250ML OF NORMAL SALINE)
     Route: 041
     Dates: start: 20250926, end: 20250926
  3. SODIUM CHLORIDE [Suspect]
     Active Substance: SODIUM CHLORIDE
     Indication: Medication dilution
     Dosage: 250 ML, QD (NORMAL SALINE WITH PACLITAXEL NANOPARTICLE ALBUMIN-BOUND), APPROVAL NO. H20044591
     Route: 041
     Dates: start: 20250926, end: 20250926
  4. SODIUM CHLORIDE [Suspect]
     Active Substance: SODIUM CHLORIDE
     Indication: Medication dilution
     Dosage: 100 ML, QD (NORMAL SALINE WITH CYCLOPHOSPHAMIDE FOR INJECTION), APPROVAL NO. H20045210
     Route: 041
     Dates: start: 20250926, end: 20250926

REACTIONS (6)
  - Rash maculo-papular [Recovering/Resolving]
  - Oedema peripheral [Recovering/Resolving]
  - Odynophagia [Recovering/Resolving]
  - Oropharyngeal pain [Unknown]
  - Dysphagia [Unknown]
  - Pruritus [Recovering/Resolving]

NARRATIVE: CASE EVENT DATE: 20251002
